FAERS Safety Report 18901530 (Version 1)
Quarter: 2021Q1

REPORT INFORMATION
  Report Type: Spontaneous
  Country: BR (occurrence: BR)
  Receive Date: 20210216
  Receipt Date: 20210216
  Transmission Date: 20210420
  Serious: Yes (Death, Hospitalization)
  Sender: FDA-Public Use
  Company Number: BR-TEIKOKU PHARMA USA-TPU2021-00246

PATIENT

DRUGS (1)
  1. TOPERMA [Suspect]
     Active Substance: LIDOCAINE
     Indication: PRODUCT USED FOR UNKNOWN INDICATION
     Route: 065

REACTIONS (4)
  - Death [Fatal]
  - Surgery [Unknown]
  - Drug ineffective [Unknown]
  - Skin lesion [Unknown]
